FAERS Safety Report 9227502 (Version 1)
Quarter: 2013Q2

REPORT INFORMATION
  Report Type: Spontaneous
  Country: US (occurrence: None)
  Receive Date: 20130411
  Receipt Date: 20130411
  Transmission Date: 20140414
  Serious: Yes (Hospitalization)
  Sender: FDA-Public Use
  Company Number: None

PATIENT
  Age: 49 Year
  Sex: Female
  Weight: 95 kg

DRUGS (4)
  1. LEVAQUIN [Suspect]
     Indication: UPPER RESPIRATORY TRACT INFECTION
     Dosage: RECENT
     Route: 048
  2. VITD [Concomitant]
  3. HYDROCODONE/APAP [Concomitant]
  4. TUSSIONEX [Concomitant]

REACTIONS (2)
  - Drug hypersensitivity [None]
  - Bronchospasm [None]
